FAERS Safety Report 23844579 (Version 1)
Quarter: 2024Q2

REPORT INFORMATION
  Report Type: Report from Study
  Country: CN (occurrence: CN)
  Receive Date: 20240511
  Receipt Date: 20240511
  Transmission Date: 20240716
  Serious: Yes (Death, Life-Threatening, Other)
  Sender: FDA-Public Use
  Company Number: CN-Accord-423306

PATIENT
  Age: 40 Year
  Sex: Male

DRUGS (2)
  1. AZACITIDINE [Suspect]
     Active Substance: AZACITIDINE
     Indication: B-cell type acute leukaemia
     Dosage: QD D1-7
  2. VENETOCLAX [Suspect]
     Active Substance: VENETOCLAX
     Indication: B-cell type acute leukaemia
     Dosage: 100 MG D1, 200 MG D2, 400 MG D3-14

REACTIONS (6)
  - Thrombocytopenia [Unknown]
  - Anaemia [Unknown]
  - Agranulocytosis [Unknown]
  - Febrile neutropenia [Unknown]
  - Tonsillitis [Unknown]
  - Infection [Fatal]
